FAERS Safety Report 10906107 (Version 3)
Quarter: 2015Q2

REPORT INFORMATION
  Report Type: Spontaneous
  Country: JP (occurrence: JP)
  Receive Date: 20150311
  Receipt Date: 20150623
  Transmission Date: 20150821
  Serious: Yes (Other)
  Sender: FDA-Public Use
  Company Number: JP-GLAXOSMITHKLINE-JP2015JPN029216

PATIENT
  Age: 67 Year
  Sex: Male
  Weight: 67 kg

DRUGS (9)
  1. AMLODIN [Concomitant]
     Active Substance: AMLODIPINE BESYLATE
     Dosage: UNK
     Dates: start: 20111215
  2. VOTRIENT [Suspect]
     Active Substance: PAZOPANIB HYDROCHLORIDE
     Indication: SOFT TISSUE SARCOMA
     Dosage: 400 MG, QD
     Route: 048
     Dates: start: 20131125, end: 20131210
  3. WARFARIN [Suspect]
     Active Substance: WARFARIN
     Indication: ATRIAL FIBRILLATION
     Dosage: 2 MG, QD
     Route: 048
     Dates: start: 20131124, end: 20131210
  4. URIEF [Concomitant]
     Active Substance: SILODOSIN
     Dosage: UNK
     Dates: start: 20111215
  5. SELARA [Concomitant]
     Active Substance: EPLERENONE
     Dosage: UNK
     Dates: start: 20111215
  6. PURSENNID [Concomitant]
     Active Substance: SENNOSIDES A AND B
     Dosage: 12 MG, 1D
     Dates: start: 20131114
  7. GOODMIN [Concomitant]
     Active Substance: BROTIZOLAM
     Dosage: 0.25 MG, 1D
     Dates: start: 20131110
  8. WARFARIN [Suspect]
     Active Substance: WARFARIN
     Indication: VENTRICULAR FIBRILLATION
     Dosage: 2.75 MG, QD
     Route: 048
     Dates: start: 20131117, end: 20131123
  9. ARTIST [Concomitant]
     Active Substance: CARVEDILOL
     Dosage: UNK
     Dates: start: 20111215

REACTIONS (4)
  - Prothrombin time ratio increased [Unknown]
  - Nausea [Unknown]
  - Decreased appetite [Unknown]
  - Nausea [Unknown]

NARRATIVE: CASE EVENT DATE: 201311
